FAERS Safety Report 5314449-6 (Version None)
Quarter: 2007Q2

REPORT INFORMATION
  Report Type: 
  Country: None (occurrence: None)
  Receive Date: 20070502
  Receipt Date: 20070423
  Transmission Date: 20071010
  Serious: Yes (Hospitalization)
  Sender: FDA-Public Use
  Company Number: US-AMGEN-KDL215129

PATIENT
  Sex: Male
  Weight: 84.9 kg

DRUGS (2)
  1. ENBREL [Suspect]
     Indication: RHEUMATOID ARTHRITIS
     Route: 058
     Dates: start: 20060711, end: 20070315
  2. METHOTREXATE [Concomitant]
     Route: 048
     Dates: start: 20060701

REACTIONS (6)
  - KIDNEY INFECTION [None]
  - LOWER RESPIRATORY TRACT INFECTION [None]
  - LUNG DISORDER [None]
  - NASOPHARYNGITIS [None]
  - NEPHROLITHIASIS [None]
  - PROSTATIC SPECIFIC ANTIGEN ABNORMAL [None]
